FAERS Safety Report 8014077-8 (Version None)
Quarter: 2011Q4

REPORT INFORMATION
  Report Type: 
  Country: None (occurrence: None)
  Receive Date: 20111229
  Receipt Date: 20111222
  Transmission Date: 20120403
  Serious: Yes (Death)
  Sender: FDA-Public Use
  Company Number: JP-ALLERGAN-1116874US

PATIENT
  Age: 87 Year
  Sex: Male

DRUGS (3)
  1. LUMIGAN [Suspect]
     Indication: NORMAL TENSION GLAUCOMA
     Dosage: 2 GTT, QD
     Route: 047
     Dates: start: 20110915, end: 20111029
  2. TRAVOPROST [Concomitant]
     Indication: NORMAL TENSION GLAUCOMA
     Dosage: UNK
     Dates: start: 20090101, end: 20110915
  3. AZOPT [Concomitant]
     Dosage: UNK
     Route: 047
     Dates: start: 20061011

REACTIONS (1)
  - CARDIO-RESPIRATORY ARREST [None]
